FAERS Safety Report 5437615-8 (Version None)
Quarter: 2007Q3

REPORT INFORMATION
  Report Type: 
  Country: None (occurrence: None)
  Receive Date: 20070831
  Receipt Date: 20070820
  Transmission Date: 20080115
  Serious: Yes (Other)
  Sender: FDA-Public Use
  Company Number: US-ROCHE-508675

PATIENT
  Age: 59 Year
  Sex: Female
  Weight: 49 kg

DRUGS (1)
  1. BONIVA [Suspect]
     Indication: OSTEOPENIA
     Route: 048
     Dates: start: 20050913, end: 20070725

REACTIONS (2)
  - OSTEONECROSIS [None]
  - PAIN IN JAW [None]
